FAERS Safety Report 8114548-X (Version None)
Quarter: 2012Q1

REPORT INFORMATION
  Report Type: 
  Country: None (occurrence: None)
  Receive Date: 20120206
  Receipt Date: 20120131
  Transmission Date: 20120608
  Serious: No
  Sender: FDA-Public Use
  Company Number: US-PFIZER INC-2012007629

PATIENT
  Sex: Female
  Weight: 77 kg

DRUGS (5)
  1. NEURONTIN [Suspect]
     Dosage: 600 MG, 3X/DAY
     Dates: start: 20110101
  2. ZOLOFT [Concomitant]
     Indication: DEPRESSION
     Dosage: 100 MG, DAILY
  3. NEURONTIN [Suspect]
     Indication: BACK PAIN
     Dosage: 300 MG, HS (AT BEDTIME); PLAN TO TWICE DAILY
  4. NEURONTIN [Suspect]
     Dosage: 600 MG, 2X/DAY
  5. NEURONTIN [Suspect]
     Indication: MYALGIA
     Dosage: 600 MG, DAILY
     Dates: start: 20100101

REACTIONS (3)
  - INCORRECT DOSE ADMINISTERED [None]
  - FATIGUE [None]
  - SOMNOLENCE [None]
